FAERS Safety Report 18240872 (Version 1)
Quarter: 2020Q3

REPORT INFORMATION
  Report Type: Spontaneous
  Country: US (occurrence: US)
  Receive Date: 20200905
  Receipt Date: 20200905
  Transmission Date: 20201103
  Serious: Yes (Hospitalization, Other)
  Sender: FDA-Public Use
  Company Number: None

PATIENT
  Age: 55 Year
  Sex: Female
  Weight: 58.5 kg

DRUGS (6)
  1. ACYCLOVIR. [Concomitant]
     Active Substance: ACYCLOVIR
  2. PICATO [Suspect]
     Active Substance: INGENOL MEBUTATE
     Indication: ACTINIC KERATOSIS
     Dosage: ?          QUANTITY:1 GEL CREAM;OTHER FREQUENCY:SINGLE DOSE;?
     Route: 061
     Dates: start: 20200902, end: 20200903
  3. PROGESTERONE. [Concomitant]
     Active Substance: PROGESTERONE
  4. ESTRADIOL TRANSDERMAL SYSTEM [Concomitant]
     Active Substance: ESTRADIOL
  5. CALCIUM SUPPLEMENT [Concomitant]
     Active Substance: CALCIUM
  6. ESTROVEN SUPPLEMENT [Concomitant]

REACTIONS (4)
  - Pain [None]
  - Swelling [None]
  - Blister [None]
  - Eye irritation [None]

NARRATIVE: CASE EVENT DATE: 20200903
